FAERS Safety Report 24547723 (Version 1)
Quarter: 2024Q4

REPORT INFORMATION
  Report Type: Spontaneous
  Country: CA (occurrence: CA)
  Receive Date: 20241025
  Receipt Date: 20241025
  Transmission Date: 20250115
  Serious: Yes (Life-Threatening)
  Sender: LEO PHARM
  Company Number: None

PATIENT
  Age: 74 Year
  Sex: Female
  Weight: 77 kg

DRUGS (3)
  1. PROTOPIC [Suspect]
     Active Substance: TACROLIMUS
     Indication: Eczema eyelids
     Dosage: DOSE: ASKED BUT UNKNOWN
     Route: 003
  2. SYNTHROID [Concomitant]
     Active Substance: LEVOTHYROXINE SODIUM
     Indication: Product used for unknown indication
     Dosage: DOSE, FREQUENCY, THERAPY DURATION: ASKED BUT UNKNOWN
  3. DOXYCYCLINE [Concomitant]
     Active Substance: DOXYCYCLINE
     Indication: Product used for unknown indication
     Dosage: DOSE, FREQUENCY, THERAPY DURATION: ASKED BUT UNKNOWN

REACTIONS (2)
  - Herpes zoster [Recovering/Resolving]
  - Blood thyroid stimulating hormone increased [Recovering/Resolving]
